FAERS Safety Report 10024377 (Version 1)
Quarter: 2014Q1

REPORT INFORMATION
  Report Type: Spontaneous
  Country: US (occurrence: US)
  Receive Date: 20140320
  Receipt Date: 20140320
  Transmission Date: 20141002
  Serious: Yes (Death, Other)
  Sender: FDA-Public Use
  Company Number: US-GILEAD-2014-0097290

PATIENT
  Age: 60 Year
  Sex: Female

DRUGS (7)
  1. LETAIRIS [Suspect]
     Indication: PULMONARY ARTERIAL HYPERTENSION
     Route: 048
     Dates: start: 20080213, end: 20140227
  2. SPIRONOLACTONE [Concomitant]
  3. LASIX                              /00032601/ [Concomitant]
  4. DIGOXIN [Concomitant]
  5. NEXIUM                             /01479302/ [Concomitant]
  6. MAGNESIUM OXIDE [Concomitant]
  7. VIT D [Concomitant]

REACTIONS (1)
  - Death [Fatal]
